APPROVED DRUG PRODUCT: CEFPROZIL
Active Ingredient: CEFPROZIL
Strength: 500MG
Dosage Form/Route: TABLET;ORAL
Application: A065267 | Product #002
Applicant: ORCHID HEALTHCARE
Approved: Dec 19, 2005 | RLD: No | RS: No | Type: DISCN